FAERS Safety Report 6139568-6 (Version None)
Quarter: 2009Q2

REPORT INFORMATION
  Report Type: 
  Country: None (occurrence: None)
  Receive Date: 20090401
  Receipt Date: 20090323
  Transmission Date: 20091009
  Serious: Yes (Life-Threatening, Hospitalization)
  Sender: FDA-Public Use
  Company Number: US-NOVOPROD-284266

PATIENT
  Sex: Female
  Weight: 19.3 kg

DRUGS (2)
  1. NORDITROPIN NORDIFLEX [Suspect]
     Indication: SMALL FOR DATES BABY
     Dosage: 1.1 MG, 6 DAYS A WEEK
     Route: 058
     Dates: start: 20060320, end: 20090211
  2. NORDITROPIN NORDIFLEX [Suspect]
     Route: 058
     Dates: start: 20090303

REACTIONS (15)
  - ACUTE RESPIRATORY DISTRESS SYNDROME [None]
  - ANAEMIA [None]
  - CARDIOVASCULAR INSUFFICIENCY [None]
  - COAGULOPATHY [None]
  - DIZZINESS [None]
  - INFLUENZA LIKE ILLNESS [None]
  - NUTRITIONAL CONDITION ABNORMAL [None]
  - PHARYNGITIS STREPTOCOCCAL [None]
  - PLEURAL EFFUSION [None]
  - PNEUMONIA [None]
  - PNEUMOTHORAX [None]
  - SEPSIS [None]
  - THROMBOCYTOPENIA [None]
  - TOXIC SHOCK SYNDROME [None]
  - WITHDRAWAL SYNDROME [None]
